FAERS Safety Report 5369245-0 (Version None)
Quarter: 2007Q2

REPORT INFORMATION
  Report Type: 
  Country: None (occurrence: None)
  Receive Date: 20070625
  Receipt Date: 20070222
  Transmission Date: 20071010
  Serious: No
  Sender: FDA-Public Use
  Company Number: US-ASTRAZENECA-2007UW03437

PATIENT
  Age: 70 Year
  Sex: Female
  Weight: 61.2 kg

DRUGS (5)
  1. CRESTOR [Suspect]
     Indication: BLOOD CHOLESTEROL
     Route: 048
     Dates: start: 20060101
  2. CALCIUM CHLORIDE [Concomitant]
  3. ASCORBIC ACID [Concomitant]
  4. VITAMIN D [Concomitant]
  5. VITAMIN E [Concomitant]

REACTIONS (3)
  - COLITIS [None]
  - CONSTIPATION [None]
  - FLATULENCE [None]
